FAERS Safety Report 6146061-3 (Version None)
Quarter: 2009Q2

REPORT INFORMATION
  Report Type: 
  Country: None (occurrence: None)
  Receive Date: 20090407
  Receipt Date: 20090403
  Transmission Date: 20091009
  Serious: Yes (Hospitalization, Other)
  Sender: FDA-Public Use
  Company Number: US-ASTRAZENECA-2008UW26529

PATIENT
  Age: 13071 Day
  Sex: Female
  Weight: 75.7 kg

DRUGS (14)
  1. SEROQUEL [Suspect]
     Indication: BIPOLAR DISORDER
     Route: 048
     Dates: start: 20040228, end: 20050501
  2. SEROQUEL [Suspect]
     Indication: DEPRESSION
     Route: 048
     Dates: start: 20040228, end: 20050501
  3. SEROQUEL [Suspect]
     Route: 048
     Dates: start: 20050501, end: 20080701
  4. SEROQUEL [Suspect]
     Route: 048
     Dates: start: 20050501, end: 20080701
  5. ABILIFY [Concomitant]
     Dosage: 5 MG TO 10 MG
     Dates: start: 20080601, end: 20081101
  6. FLUOXETINE [Concomitant]
     Dosage: 20MG TO 40 MG
     Dates: start: 20030201, end: 20080201
  7. WELLBUTRIN [Concomitant]
     Dates: start: 20030201
  8. DEPAKOTE [Concomitant]
     Dates: start: 20030201
  9. TRAZODONE [Concomitant]
     Dosage: 50 MG TO 150 MG
     Dates: start: 20030301, end: 20080801
  10. CLONAZEPAM [Concomitant]
     Dosage: 0.5 MG TO 1 MG
     Dates: start: 20040501, end: 20080801
  11. CYMBALTA [Concomitant]
     Dates: start: 20080701, end: 20080801
  12. LORAZEPAM [Concomitant]
     Dates: start: 20080501
  13. ZOLOFT [Concomitant]
     Dates: start: 20021203
  14. AMITRIPTYLINE [Concomitant]
     Dosage: 10 MG TO 50 MG
     Dates: start: 20041101, end: 20071001

REACTIONS (3)
  - EPILEPSY [None]
  - HOSPITALISATION [None]
  - TYPE 2 DIABETES MELLITUS [None]
